FAERS Safety Report 6032261-X (Version None)
Quarter: 2009Q1

REPORT INFORMATION
  Report Type: 
  Country: None (occurrence: None)
  Receive Date: 20090102
  Receipt Date: 20081222
  Transmission Date: 20090719
  Serious: Yes (Hospitalization)
  Sender: FDA-Public Use
  Company Number: AEUSA200800298

PATIENT
  Age: 30 Year
  Sex: Female
  Weight: 87.0906 kg

DRUGS (4)
  1. GAMUNEX [Suspect]
     Indication: MYASTHENIA GRAVIS
     Dosage: QD; IV
     Route: 042
     Dates: start: 20081007, end: 20081009
  2. MESTINON [Concomitant]
  3. FIORICET [Concomitant]
  4. LORA TAB [Concomitant]

REACTIONS (15)
  - BACK PAIN [None]
  - BLOOD PRESSURE INCREASED [None]
  - DIARRHOEA [None]
  - DIPLOPIA [None]
  - HEADACHE [None]
  - HEART RATE INCREASED [None]
  - LOSS OF CONSCIOUSNESS [None]
  - MENINGITIS ASEPTIC [None]
  - NAUSEA [None]
  - OLIGURIA [None]
  - PAIN IN EXTREMITY [None]
  - POLYDIPSIA [None]
  - PRURITUS [None]
  - VOMITING [None]
  - WEIGHT INCREASED [None]
